FAERS Safety Report 12389604 (Version 1)
Quarter: 2016Q2

REPORT INFORMATION
  Report Type: Spontaneous
  Country: TR (occurrence: TR)
  Receive Date: 20160520
  Receipt Date: 20160520
  Transmission Date: 20160815
  Serious: Yes (Other)
  Sender: FDA-Public Use
  Company Number: TR-PFIZER INC-2016259430

PATIENT
  Age: 58 Year
  Sex: Male
  Weight: 91 kg

DRUGS (1)
  1. CHAMPIX [Suspect]
     Active Substance: VARENICLINE TARTRATE
     Indication: SMOKING CESSATION THERAPY
     Dosage: 1 MG, 2X/DAY
     Route: 048

REACTIONS (6)
  - Suicidal ideation [Unknown]
  - Boredom [Unknown]
  - Aggression [Recovering/Resolving]
  - Abnormal behaviour [Recovering/Resolving]
  - Feeling abnormal [Unknown]
  - Depression [Unknown]

NARRATIVE: CASE EVENT DATE: 20151003
